FAERS Safety Report 5821017-6 (Version None)
Quarter: 2008Q3

REPORT INFORMATION
  Report Type: 
  Country: None (occurrence: None)
  Receive Date: 20080724
  Receipt Date: 20080717
  Transmission Date: 20090109
  Serious: Yes (Hospitalization, Other)
  Sender: FDA-Public Use
  Company Number: FR-JNJFOC-20040707954

PATIENT
  Sex: Female
  Weight: 49 kg

DRUGS (10)
  1. GALANTAMINE HYDROBROMIDE [Suspect]
     Route: 048
  2. GALANTAMINE HYDROBROMIDE [Suspect]
     Route: 048
  3. GALANTAMINE HYDROBROMIDE [Suspect]
     Indication: DEMENTIA ALZHEIMER'S TYPE
     Route: 048
  4. RISPERDAL [Suspect]
     Indication: AGGRESSION
     Route: 048
     Dates: start: 20030501, end: 20040304
  5. RISPERDAL [Suspect]
     Indication: ABNORMAL BEHAVIOUR
     Route: 048
     Dates: start: 20030501, end: 20040304
  6. LASIX [Concomitant]
     Route: 065
  7. FLECAINIDE ACETATE [Concomitant]
     Route: 065
  8. EQUANIL [Concomitant]
     Route: 065
  9. POTASSIUM CHLORIDE [Concomitant]
     Route: 065
  10. GAVISCON [Concomitant]
     Route: 065

REACTIONS (2)
  - BRADYCARDIA [None]
  - PLEUROTHOTONUS [None]
